FAERS Safety Report 9265213 (Version 2)
Quarter: 2013Q3

REPORT INFORMATION
  Report Type: Spontaneous
  Country: BR (occurrence: BR)
  Receive Date: 20130501
  Receipt Date: 20130807
  Transmission Date: 20140515
  Serious: Yes (Hospitalization, Disabling, Other)
  Sender: FDA-Public Use
  Company Number: BR-ROCHE-1193655

PATIENT
  Sex: Male
  Weight: 113 kg

DRUGS (3)
  1. AVASTIN [Suspect]
     Indication: RETINOPATHY
     Route: 031
     Dates: start: 200904
  2. AVASTIN [Suspect]
     Indication: OFF LABEL USE
  3. METFORMIN [Concomitant]
     Indication: DIABETES MELLITUS
     Route: 065

REACTIONS (8)
  - Blindness unilateral [Not Recovered/Not Resolved]
  - Eye haemorrhage [Not Recovered/Not Resolved]
  - Thrombosis [Unknown]
  - Medication error [Unknown]
  - Retinal detachment [Not Recovered/Not Resolved]
  - Vision blurred [Unknown]
  - Eye disorder [Unknown]
  - Cataract [Not Recovered/Not Resolved]
